FAERS Safety Report 6501635-2 (Version None)
Quarter: 2009Q4

REPORT INFORMATION
  Report Type: 
  Country: None (occurrence: None)
  Receive Date: 20091214
  Receipt Date: 20091214
  Transmission Date: 20100525
  Serious: No
  Sender: FDA-Public Use
  Company Number: None

PATIENT
  Age: 40 Year
  Sex: Female
  Weight: 97.0698 kg

DRUGS (3)
  1. COLD REMEDY ORAL MIST [Suspect]
     Indication: NASOPHARYNGITIS
     Dosage: Q3 HOURS - ONGOING
     Dates: start: 20091122
  2. COUMADIN [Concomitant]
  3. VALERIAN ROOT [Concomitant]

REACTIONS (1)
  - AGEUSIA [None]
